FAERS Safety Report 21441925 (Version 2)
Quarter: 2022Q4

REPORT INFORMATION
  Report Type: Spontaneous
  Country: CA (occurrence: CA)
  Receive Date: 20221011
  Receipt Date: 20221027
  Transmission Date: 20230113
  Serious: Yes (Other)
  Sender: FDA-Public Use
  Company Number: CA-BAUSCH-BL-2022-023415

PATIENT
  Age: 4 Decade
  Sex: Male

DRUGS (36)
  1. DEXAMETHASONE [Suspect]
     Active Substance: DEXAMETHASONE
     Indication: Lymphoma AIDS related
     Dosage: DHAP
     Route: 065
     Dates: start: 201802, end: 201805
  2. DEXAMETHASONE [Suspect]
     Active Substance: DEXAMETHASONE
     Indication: Epstein-Barr virus associated lymphoma
  3. DEXAMETHASONE [Suspect]
     Active Substance: DEXAMETHASONE
     Indication: Diffuse large B-cell lymphoma stage IV
  4. RITUXIMAB [Suspect]
     Active Substance: RITUXIMAB
     Indication: Lymphoma AIDS related
     Dosage: DAREPOCH)., 2 CYCLES OF DOSE-ADJUSTED
     Route: 065
     Dates: start: 201712, end: 201802
  5. RITUXIMAB [Suspect]
     Active Substance: RITUXIMAB
     Indication: Epstein-Barr virus associated lymphoma
  6. RITUXIMAB [Suspect]
     Active Substance: RITUXIMAB
     Indication: Diffuse large B-cell lymphoma stage IV
  7. ETOPOSIDE [Suspect]
     Active Substance: ETOPOSIDE
     Indication: Lymphoma AIDS related
     Dosage: DAREPOCH), 2 CYCLES OF DOSE-ADJUSTED
     Route: 065
     Dates: start: 201712, end: 201802
  8. ETOPOSIDE [Suspect]
     Active Substance: ETOPOSIDE
     Indication: Epstein-Barr virus associated lymphoma
  9. ETOPOSIDE [Suspect]
     Active Substance: ETOPOSIDE
     Indication: Diffuse large B-cell lymphoma stage IV
  10. PREDNISONE [Suspect]
     Active Substance: PREDNISONE
     Indication: Lymphoma AIDS related
     Dosage: DAREPOCH), 2 CYCLES OF DOSE-ADJUSTED
     Route: 065
     Dates: start: 201712, end: 201802
  11. PREDNISONE [Suspect]
     Active Substance: PREDNISONE
     Indication: Epstein-Barr virus associated lymphoma
  12. PREDNISONE [Suspect]
     Active Substance: PREDNISONE
     Indication: Diffuse large B-cell lymphoma stage IV
  13. VINCRISTINE [Suspect]
     Active Substance: VINCRISTINE
     Indication: Lymphoma AIDS related
     Dosage: DAREPOCH), 2 CYCLES OF DOSE-ADJUSTED
     Route: 065
     Dates: start: 201712, end: 201802
  14. VINCRISTINE [Suspect]
     Active Substance: VINCRISTINE
     Indication: Epstein-Barr virus associated lymphoma
  15. VINCRISTINE [Suspect]
     Active Substance: VINCRISTINE
     Indication: Diffuse large B-cell lymphoma stage IV
  16. CYCLOPHOSPHAMIDE [Suspect]
     Active Substance: CYCLOPHOSPHAMIDE
     Indication: Lymphoma AIDS related
     Dosage: DAREPOCH), 2 CYCLES OF DOSE-ADJUSTED
     Route: 065
     Dates: start: 201712, end: 201802
  17. CYCLOPHOSPHAMIDE [Suspect]
     Active Substance: CYCLOPHOSPHAMIDE
     Indication: Epstein-Barr virus associated lymphoma
  18. CYCLOPHOSPHAMIDE [Suspect]
     Active Substance: CYCLOPHOSPHAMIDE
     Indication: Diffuse large B-cell lymphoma stage IV
  19. DOXORUBICIN [Suspect]
     Active Substance: DOXORUBICIN
     Indication: Diffuse large B-cell lymphoma stage IV
     Dosage: DAREPOCH), 2 CYCLES OF DOSE-ADJUSTED
     Route: 065
     Dates: start: 201712, end: 201802
  20. DOXORUBICIN [Suspect]
     Active Substance: DOXORUBICIN
     Indication: Epstein-Barr virus associated lymphoma
  21. DOXORUBICIN [Suspect]
     Active Substance: DOXORUBICIN
     Indication: Diffuse large B-cell lymphoma stage IV
  22. CYTARABINE [Suspect]
     Active Substance: CYTARABINE
     Indication: Lymphoma AIDS related
     Dosage: DHAP (HIGH DOSE)
     Route: 065
     Dates: start: 201802, end: 201805
  23. CYTARABINE [Suspect]
     Active Substance: CYTARABINE
     Indication: Epstein-Barr virus associated lymphoma
  24. CYTARABINE [Suspect]
     Active Substance: CYTARABINE
     Indication: Diffuse large B-cell lymphoma stage IV
  25. CISPLATIN [Suspect]
     Active Substance: CISPLATIN
     Indication: Lymphoma AIDS related
     Dosage: DHAP
     Route: 065
     Dates: start: 201802, end: 201805
  26. CISPLATIN [Suspect]
     Active Substance: CISPLATIN
     Indication: Epstein-Barr virus associated lymphoma
  27. CISPLATIN [Suspect]
     Active Substance: CISPLATIN
     Indication: Diffuse large B-cell lymphoma stage IV
  28. ETOPOSIDE [Suspect]
     Active Substance: ETOPOSIDE
     Indication: Lymphoma AIDS related
     Dosage: HIGH-DOSE
     Route: 065
     Dates: start: 201802, end: 201805
  29. ETOPOSIDE [Suspect]
     Active Substance: ETOPOSIDE
     Indication: Epstein-Barr virus associated lymphoma
     Route: 065
     Dates: start: 201805, end: 201808
  30. ETOPOSIDE [Suspect]
     Active Substance: ETOPOSIDE
     Indication: Diffuse large B-cell lymphoma stage IV
  31. TENOFOVIR [Concomitant]
     Active Substance: TENOFOVIR
     Indication: HIV infection
     Dosage: HIGHLY-ACTIVE ANTIRETROVIRAL THERAPY (HAART)
  32. EMTRICITABINE [Concomitant]
     Active Substance: EMTRICITABINE
     Indication: HIV infection
     Dosage: HIGHLY-ACTIVE ANTIRETROVIRAL THERAPY (HAART)
  33. RALTEGRAVIR [Concomitant]
     Active Substance: RALTEGRAVIR
     Indication: HIV infection
     Dosage: HIGHLY-ACTIVE ANTIRETROVIRAL THERAPY (HAART)
  34. IFOSFAMIDE [Suspect]
     Active Substance: IFOSFAMIDE
  35. IFOSFAMIDE [Suspect]
     Active Substance: IFOSFAMIDE
  36. IFOSFAMIDE [Suspect]
     Active Substance: IFOSFAMIDE

REACTIONS (1)
  - Therapy non-responder [Unknown]
